FAERS Safety Report 8525282-6 (Version None)
Quarter: 2012Q3

REPORT INFORMATION
  Report Type: 
  Country: None (occurrence: None)
  Receive Date: 20120720
  Receipt Date: 20120717
  Transmission Date: 20120928
  Serious: Yes (Hospitalization, Other)
  Sender: FDA-Public Use
  Company Number: PHHY2010CA12589

PATIENT
  Sex: Female

DRUGS (4)
  1. SANDOSTATIN LAR [Suspect]
     Dosage: 20 MG, QMO
     Route: 030
     Dates: start: 20091231
  2. SANDOSTATIN LAR [Suspect]
     Indication: CARCINOID TUMOUR
     Dosage: 20 MG,  EVERY 4 WEEKS
     Route: 030
     Dates: start: 20091231
  3. SANDOSTATIN LAR [Suspect]
     Dosage: 30 MG, EVERY 4 WEEKS
     Route: 030
  4. SANDOSTATIN LAR [Suspect]
     Dosage: 20 MG, EVERY 4 WEEKS
     Route: 030
     Dates: start: 20120103

REACTIONS (19)
  - BLOOD PRESSURE INCREASED [None]
  - CHOLELITHIASIS [None]
  - ABDOMINAL PAIN [None]
  - BURNING SENSATION [None]
  - NEURALGIA [None]
  - FLUSHING [None]
  - PAIN [None]
  - INJECTION SITE PAIN [None]
  - ANXIETY [None]
  - NAUSEA [None]
  - INJECTION SITE INFLAMMATION [None]
  - GLOSSODYNIA [None]
  - GROIN PAIN [None]
  - GAIT DISTURBANCE [None]
  - AXILLARY MASS [None]
  - INTESTINAL OBSTRUCTION [None]
  - STRESS [None]
  - DIARRHOEA [None]
  - FATIGUE [None]
